FAERS Safety Report 5446699-2 (Version None)
Quarter: 2007Q3

REPORT INFORMATION
  Report Type: 
  Country: None (occurrence: None)
  Receive Date: 20070907
  Receipt Date: 20070827
  Transmission Date: 20080115
  Serious: Yes (Death, Other)
  Sender: FDA-Public Use
  Company Number: US-PFIZER INC-2007071528

PATIENT

DRUGS (1)
  1. ZOLOFT [Suspect]

REACTIONS (3)
  - CYANOSIS [None]
  - DEATH [None]
  - DRUG EXPOSURE DURING PREGNANCY [None]
